FAERS Safety Report 25944905 (Version 1)
Quarter: 2025Q4

REPORT INFORMATION
  Report Type: Spontaneous
  Country: US (occurrence: US)
  Receive Date: 20251021
  Receipt Date: 20251021
  Transmission Date: 20260118
  Serious: No
  Sender: Phathom Pharmaceuticals
  Company Number: US-PHATHOM PHARMACEUTICALS INC.-2025PHT01777

PATIENT
  Age: 72 Year
  Sex: Female

DRUGS (32)
  1. VOQUEZNA [Suspect]
     Active Substance: VONOPRAZAN FUMARATE
     Dosage: 20 MG, 1X/DAY
     Route: 048
     Dates: start: 20250313
  2. VITAMINS [Concomitant]
     Active Substance: VITAMINS
  3. ALBUTEROL\IPRATROPIUM [Concomitant]
     Active Substance: ALBUTEROL\IPRATROPIUM
  4. DEMANNOSE [Concomitant]
     Active Substance: DEMANNOSE
  5. MILK THISTLE [GLYCINE MAX;SILYBUM MARIANUM POWDER] [Concomitant]
  6. FISH OIL [Concomitant]
     Active Substance: FISH OIL
  7. FISH OIL [Concomitant]
     Active Substance: FISH OIL
  8. VITAMIN C [Concomitant]
     Active Substance: ASCORBIC ACID
  9. OCUVITE [ASCORBIC ACID;RETINOL;TOCOPHEROL] [Concomitant]
  10. PROBIOTICS [PROBIOTICS NOS] [Concomitant]
  11. LACTASE [Concomitant]
     Active Substance: LACTASE
  12. CLARITIN [Concomitant]
     Active Substance: LORATADINE
  13. MIRALAX [Concomitant]
     Active Substance: POLYETHYLENE GLYCOL 3350
  14. VITAMIN D3 [Concomitant]
     Active Substance: CHOLECALCIFEROL
  15. MAGNESIUM [Concomitant]
     Active Substance: MAGNESIUM
  16. NITROGLYCERIN [Concomitant]
     Active Substance: NITROGLYCERIN
  17. ANORO ELLIPTA [Concomitant]
     Active Substance: UMECLIDINIUM BROMIDE\VILANTEROL TRIFENATATE
  18. ONDANSETRON [Concomitant]
     Active Substance: ONDANSETRON
  19. OXYCODONE [Concomitant]
     Active Substance: OXYCODONE
  20. TRAZODONE [Concomitant]
     Active Substance: TRAZODONE HYDROCHLORIDE
  21. ATORVASTATIN [Concomitant]
     Active Substance: ATORVASTATIN
  22. LOSARTAN [Concomitant]
     Active Substance: LOSARTAN
  23. RESTASIS [Concomitant]
     Active Substance: CYCLOSPORINE
  24. CHILDRENS ASPIRIN [Concomitant]
     Active Substance: ASPIRIN
  25. AMITRIPTYLINE [Concomitant]
     Active Substance: AMITRIPTYLINE
  26. PROMETHAZINE [Concomitant]
     Active Substance: PROMETHAZINE HYDROCHLORIDE
  27. METFORMIN [Concomitant]
     Active Substance: METFORMIN HYDROCHLORIDE
  28. LINZESS [Concomitant]
     Active Substance: LINACLOTIDE
  29. PRAMIPEXOLE [Concomitant]
     Active Substance: PRAMIPEXOLE
  30. PANTOPRAZOLE [Concomitant]
     Active Substance: PANTOPRAZOLE
  31. FAMOTIDINE [Concomitant]
     Active Substance: FAMOTIDINE
  32. METOPROLOL SUCCINATE [Concomitant]
     Active Substance: METOPROLOL SUCCINATE

REACTIONS (1)
  - Muscle spasms [Unknown]

NARRATIVE: CASE EVENT DATE: 20250101
